FAERS Safety Report 9032155 (Version 1)
Quarter: 2013Q1

REPORT INFORMATION
  Report Type: Report from Study
  Country: US (occurrence: US)
  Receive Date: 20130122
  Receipt Date: 20130122
  Transmission Date: 20140127
  Serious: No
  Sender: FDA-Public Use
  Company Number: US-VERTEX PHARMACEUTICALS INC.-2013-000841

PATIENT
  Age: 56 Year
  Sex: Male

DRUGS (4)
  1. VX-950 (TELAPREVIR) [Suspect]
     Indication: HEPATITIS C
     Dosage: 750 MG, TID
     Route: 048
     Dates: start: 20121208
  2. RIBAVIRIN [Suspect]
     Indication: HEPATITIS C
     Dosage: 1200 MG, QD
     Route: 048
     Dates: start: 20121208
  3. RIBAVIRIN [Suspect]
     Dosage: 600MG IN AM/400MG IN PM
     Route: 048
  4. PEGINTERFERON ALFA [Suspect]
     Indication: HEPATITIS C
     Dosage: UNK
     Dates: start: 20121208

REACTIONS (1)
  - Blood count abnormal [Not Recovered/Not Resolved]
